FAERS Safety Report 10142599 (Version 1)
Quarter: 2014Q2

REPORT INFORMATION
  Report Type: Spontaneous
  Country: US (occurrence: None)
  Receive Date: 20140428
  Receipt Date: 20140428
  Transmission Date: 20141212
  Serious: Yes (Hospitalization, Other)
  Sender: FDA-Public Use
  Company Number: None

PATIENT
  Age: 85 Year
  Sex: Male
  Weight: 79.1 kg

DRUGS (2)
  1. WARFARIN [Suspect]
     Indication: ATRIAL FIBRILLATION
     Route: 048
     Dates: start: 20110408, end: 20140323
  2. WARFARIN [Suspect]
     Indication: DEEP VEIN THROMBOSIS
     Route: 048
     Dates: start: 20110408, end: 20140323

REACTIONS (7)
  - Vomiting [None]
  - Occult blood positive [None]
  - Pain in extremity [None]
  - Upper gastrointestinal haemorrhage [None]
  - Peripheral ischaemia [None]
  - Faeces discoloured [None]
  - Pulse absent [None]
